FAERS Safety Report 25395853 (Version 1)
Quarter: 2025Q2

REPORT INFORMATION
  Report Type: Spontaneous
  Country: CN (occurrence: CN)
  Receive Date: 20250604
  Receipt Date: 20250604
  Transmission Date: 20250717
  Serious: Yes (Other)
  Sender: ORGANON
  Company Number: CN-ORGANON-O2505CHN004286

PATIENT
  Age: 67 Year
  Sex: Female
  Weight: 75 kg

DRUGS (1)
  1. COZAAR [Suspect]
     Active Substance: LOSARTAN POTASSIUM
     Indication: Hypertension
     Dosage: 50MG, QD, ORALLY
     Route: 048
     Dates: start: 20250401, end: 20250430

REACTIONS (2)
  - Tongue paralysis [Recovering/Resolving]
  - Facial discomfort [Recovering/Resolving]

NARRATIVE: CASE EVENT DATE: 20250430
